FAERS Safety Report 24069807 (Version 1)
Quarter: 2024Q3

REPORT INFORMATION
  Report Type: Report from Study
  Country: KR (occurrence: KR)
  Receive Date: 20240710
  Receipt Date: 20240710
  Transmission Date: 20241017
  Serious: No
  Sender: ROCHE
  Company Number: KR-ROCHE-3563828

PATIENT
  Age: 61 Year
  Sex: Female

DRUGS (1)
  1. VABYSMO [Suspect]
     Active Substance: FARICIMAB\FARICIMAB-SVOA
     Indication: Diabetic retinal oedema
     Dosage: ON 29/APR/2024 TOOK THE 2ND INJECTION OF VABYSMO.
     Route: 065
     Dates: start: 20240226

REACTIONS (2)
  - Off label use [Unknown]
  - No adverse event [Unknown]
